FAERS Safety Report 4766102-5 (Version None)
Quarter: 2005Q3

REPORT INFORMATION
  Report Type: 
  Country: None (occurrence: None)
  Receive Date: 20050906
  Receipt Date: 20050823
  Transmission Date: 20060218
  Serious: Yes (Disabling)
  Sender: FDA-Public Use
  Company Number: 200500111

PATIENT
  Age: 53 Year
  Sex: Male

DRUGS (5)
  1. BOTOX [Suspect]
     Indication: TORTICOLLIS
     Dates: start: 19950101
  2. BOTOX [Suspect]
     Indication: TORTICOLLIS
     Dates: start: 20030101
  3. BOTOX [Suspect]
     Indication: TORTICOLLIS
     Dates: start: 20040101
  4. NEURONTIN [Concomitant]
  5. SKIN LOTION [Concomitant]

REACTIONS (21)
  - ACTIVITIES OF DAILY LIVING IMPAIRED [None]
  - ASTHENIA [None]
  - BENIGN PROSTATIC HYPERPLASIA [None]
  - BLEPHARITIS [None]
  - BURNING SENSATION [None]
  - COMPRESSION FRACTURE [None]
  - DISTURBANCE IN ATTENTION [None]
  - DYSLIPIDAEMIA [None]
  - FATIGUE [None]
  - FEELING ABNORMAL [None]
  - GASTROOESOPHAGEAL REFLUX DISEASE [None]
  - HYPERTENSION [None]
  - HYPOAESTHESIA [None]
  - INJURY [None]
  - INTERVERTEBRAL DISC DISORDER [None]
  - MUSCULAR WEAKNESS [None]
  - PAIN IN EXTREMITY [None]
  - PARAESTHESIA [None]
  - ROTATOR CUFF SYNDROME [None]
  - SPINAL OSTEOARTHRITIS [None]
  - TREMOR [None]
